FAERS Safety Report 12759654 (Version 2)
Quarter: 2018Q1

REPORT INFORMATION
  Report Type: Spontaneous
  Country: US (occurrence: US)
  Receive Date: 20160919
  Receipt Date: 20180205
  Transmission Date: 20180508
  Serious: Yes (Other)
  Sender: FDA-Public Use
  Company Number: US-ASTELLAS-2015US043416

PATIENT
  Age: 64 Year
  Sex: Male

DRUGS (1)
  1. XTANDI [Suspect]
     Active Substance: ENZALUTAMIDE
     Indication: PROSTATE CANCER
     Route: 048
     Dates: start: 20151007, end: 201801

REACTIONS (10)
  - Nausea [Unknown]
  - Confusional state [Unknown]
  - Bladder disorder [Unknown]
  - Drug dose omission [Recovered/Resolved]
  - Thyroid disorder [Unknown]
  - Salivary hypersecretion [Not Recovered/Not Resolved]
  - Prostatic specific antigen increased [Unknown]
  - Hot flush [Unknown]
  - Malignant neoplasm progression [Unknown]
  - Memory impairment [Unknown]

NARRATIVE: CASE EVENT DATE: 201604
